FAERS Safety Report 4863775-3 (Version None)
Quarter: 2005Q4

REPORT INFORMATION
  Report Type: 
  Country: None (occurrence: None)
  Receive Date: 20051222
  Receipt Date: 20050815
  Transmission Date: 20060501
  Serious: No
  Sender: FDA-Public Use
  Company Number: US-GLAXOSMITHKLINE-A0570251A

PATIENT
  Age: 43 Year
  Sex: Female

DRUGS (12)
  1. FLONASE [Suspect]
     Dosage: 1PUFF TWICE PER DAY
     Route: 045
  2. ADVAIR DISKUS 250/50 [Concomitant]
  3. XOPENEX [Concomitant]
  4. PROCARDIA XL [Concomitant]
  5. DEPAKOTE [Concomitant]
  6. KLONOPIN [Concomitant]
  7. LORTAB [Concomitant]
  8. SOMA [Concomitant]
  9. VALIUM [Concomitant]
  10. AMBIEN [Concomitant]
  11. CHOLESTEROL REDUCING AGENT [Concomitant]
  12. IPRATROPIUM BROMIDE [Concomitant]

REACTIONS (6)
  - EAR PRURITUS [None]
  - EPISTAXIS [None]
  - LARYNGITIS [None]
  - NASAL DISCOMFORT [None]
  - ORAL PRURITUS [None]
  - OVERDOSE [None]
